FAERS Safety Report 7811144-6 (Version None)
Quarter: 2011Q4

REPORT INFORMATION
  Report Type: 
  Country: None (occurrence: None)
  Receive Date: 20111013
  Receipt Date: 20111005
  Transmission Date: 20120403
  Serious: Yes (Hospitalization)
  Sender: FDA-Public Use
  Company Number: US-ASTELLAS-2011US003223

PATIENT
  Sex: Male
  Weight: 108 kg

DRUGS (1)
  1. PROGRAF [Suspect]
     Indication: RENAL AND PANCREAS TRANSPLANT
     Dosage: 3 MG, BID
     Route: 048
     Dates: start: 20020315

REACTIONS (4)
  - PANCREATITIS [None]
  - OFF LABEL USE [None]
  - RIB FRACTURE [None]
  - HOSPITALISATION [None]
